FAERS Safety Report 21240996 (Version 1)
Quarter: 2022Q3

REPORT INFORMATION
  Report Type: Spontaneous
  Country: JP (occurrence: JP)
  Receive Date: 20220823
  Receipt Date: 20220823
  Transmission Date: 20221027
  Serious: Yes (Death)
  Sender: FDA-Public Use
  Company Number: JP-SPECGX-T202201808

PATIENT
  Age: 62 Year
  Sex: Male
  Weight: 53 kg

DRUGS (5)
  1. METHADONE [Suspect]
     Active Substance: METHADONE HYDROCHLORIDE
     Indication: Cancer pain
     Dosage: 10 MILLIGRAM, BID
     Route: 048
  2. METHADONE [Suspect]
     Active Substance: METHADONE HYDROCHLORIDE
     Dosage: 20 MILLIGRAM
     Route: 048
  3. KETAMINE HYDROCHLORIDE [Concomitant]
     Active Substance: KETAMINE HYDROCHLORIDE
     Indication: Pain management
     Dosage: 50 MILLIGRAM, QD
     Route: 042
  4. KETAMINE HYDROCHLORIDE [Concomitant]
     Active Substance: KETAMINE HYDROCHLORIDE
     Dosage: 156 MILLIGRAM, QD
     Route: 042
  5. KETAMINE HYDROCHLORIDE [Concomitant]
     Active Substance: KETAMINE HYDROCHLORIDE
     Dosage: UNK, REDUCED BY 20%-25% EVERY TWO DAYS
     Route: 042

REACTIONS (2)
  - Rectal cancer metastatic [Fatal]
  - Neoplasm progression [Fatal]
